FAERS Safety Report 11748474 (Version 1)
Quarter: 2015Q4

REPORT INFORMATION
  Report Type: Spontaneous
  Country: GB (occurrence: GB)
  Receive Date: 20151117
  Receipt Date: 20151117
  Transmission Date: 20160304
  Serious: Yes (Hospitalization)
  Sender: FDA-Public Use
  Company Number: GB-RARE DISEASE THERAPEUTICS, INC.-1044341

PATIENT
  Sex: Male
  Weight: 1.47 kg

DRUGS (4)
  1. PURIXAN [Suspect]
     Active Substance: MERCAPTOPURINE
  2. MERCAPTOPURINE. [Suspect]
     Active Substance: MERCAPTOPURINE
  3. PREDNISOLONE. [Suspect]
     Active Substance: PREDNISOLONE
  4. MESALAZINE [Suspect]
     Active Substance: MESALAMINE

REACTIONS (4)
  - Foetal exposure during pregnancy [Unknown]
  - Hypoventilation [Recovered/Resolved]
  - Low birth weight baby [Recovered/Resolved]
  - Premature baby [Recovered/Resolved]
